FAERS Safety Report 5568488-0 (Version None)
Quarter: 2007Q4

REPORT INFORMATION
  Report Type: 
  Country: None (occurrence: None)
  Receive Date: 20071022
  Receipt Date: 20071212
  Transmission Date: 20080405
  Serious: Yes (Death)
  Sender: FDA-Public Use
  Company Number: US-BRACCO-BDI-010622

PATIENT

DRUGS (5)
  1. ISOVUE-128 [Suspect]
     Indication: CATHETER PLACEMENT
     Route: 042
     Dates: start: 20071120, end: 20071120
  2. BLOOD PRESSURE MEDICATIONS [Concomitant]
     Route: 065
  3. BENADRYL                           /00647601/ [Concomitant]
     Route: 042
     Dates: start: 20071120, end: 20071120
  4. CIMETIDINE [Concomitant]
     Route: 042
     Dates: start: 20071120, end: 20071120
  5. SOLU-CORTEF [Concomitant]
     Route: 042
     Dates: start: 20071120, end: 20071120

REACTIONS (1)
  - HYPERSENSITIVITY [None]
